FAERS Safety Report 8472822-1 (Version None)
Quarter: 2012Q2

REPORT INFORMATION
  Report Type: 
  Country: None (occurrence: None)
  Receive Date: 20120627
  Receipt Date: 20120626
  Transmission Date: 20120825
  Serious: No
  Sender: FDA-Public Use
  Company Number: US-PFIZER INC-2012154154

PATIENT
  Sex: Female
  Weight: 122 kg

DRUGS (7)
  1. SOTALOL [Concomitant]
     Indication: ATRIAL FIBRILLATION
     Dosage: UNK
  2. CHANTIX [Suspect]
     Dosage: 0.5 MG, 1X/DAY
     Route: 048
  3. ZOLPIDEM [Concomitant]
     Indication: SLEEP DISORDER
     Dosage: UNK
  4. CHANTIX [Suspect]
     Dosage: UNK
     Route: 048
  5. CHANTIX [Suspect]
     Dosage: UNK
     Route: 048
     Dates: start: 20120601
  6. XANAX [Concomitant]
     Indication: SLEEP DISORDER
     Dosage: UNK
  7. CHANTIX [Suspect]
     Indication: SMOKING CESSATION THERAPY
     Dosage: 0.5 MG, 1X/DAY
     Route: 048

REACTIONS (4)
  - SOMNOLENCE [None]
  - STRESS [None]
  - HEADACHE [None]
  - FATIGUE [None]
